FAERS Safety Report 4872770-X (Version None)
Quarter: 2006Q1

REPORT INFORMATION
  Report Type: 
  Country: None (occurrence: None)
  Receive Date: 20060105
  Receipt Date: 20051209
  Transmission Date: 20060701
  Serious: Yes (Death, Other)
  Sender: FDA-Public Use
  Company Number: CA-BRISTOL-MYERS SQUIBB COMPANY-13218680

PATIENT
  Age: 79 Year
  Sex: Male

DRUGS (12)
  1. TEQUIN [Suspect]
     Route: 048
  2. ALDACTONE [Concomitant]
  3. ALTACE [Concomitant]
  4. AMIODARONE [Concomitant]
  5. AVAPRO [Concomitant]
  6. COUMADIN [Concomitant]
  7. DIABETA [Concomitant]
  8. GLUCOPHAGE [Concomitant]
  9. LANOXIN [Concomitant]
  10. LASIX [Concomitant]
     Route: 048
  11. MONOCOR [Concomitant]
  12. SERAX [Concomitant]

REACTIONS (5)
  - CARDIAC FAILURE [None]
  - CEREBRAL HAEMORRHAGE [None]
  - CEREBROVASCULAR ACCIDENT [None]
  - DEATH [None]
  - HYPOGLYCAEMIA [None]
